FAERS Safety Report 21690635 (Version 4)
Quarter: 2023Q1

REPORT INFORMATION
  Report Type: Spontaneous
  Country: AR (occurrence: AR)
  Receive Date: 20221206
  Receipt Date: 20230307
  Transmission Date: 20230418
  Serious: Yes (Other)
  Sender: FDA-Public Use
  Company Number: AR-PFIZER INC-PV202200115512

PATIENT
  Age: 77 Year
  Sex: Male
  Weight: 80 kg

DRUGS (4)
  1. ENBREL [Suspect]
     Active Substance: ETANERCEPT
     Indication: Psoriasis
     Dosage: 50 MG, WEEKLY
     Route: 065
     Dates: start: 20191119, end: 202210
  2. TAMSULOISIN [Concomitant]
     Dosage: 0.4 MG, DAILY
     Dates: start: 2010
  3. LOSARTAN [Concomitant]
     Active Substance: LOSARTAN
     Dosage: 50 MG, DAILY
     Dates: start: 2010
  4. NEBIVOLOL [Concomitant]
     Active Substance: NEBIVOLOL
     Dosage: 2.5 MG, DAILY
     Dates: start: 2010

REACTIONS (4)
  - Renal atrophy [Not Recovered/Not Resolved]
  - Renal impairment [Not Recovered/Not Resolved]
  - Blood creatinine increased [Unknown]
  - Blood urea increased [Unknown]
